FAERS Safety Report 9656911 (Version 1)
Quarter: 2013Q4

REPORT INFORMATION
  Report Type: Spontaneous
  Country: IT (occurrence: None)
  Receive Date: 20131028
  Receipt Date: 20131028
  Transmission Date: 20140711
  Serious: Yes (Hospitalization)
  Sender: FDA-Public Use
  Company Number: FK201304683

PATIENT
  Age: 37 Year
  Sex: Female

DRUGS (2)
  1. CHORIONIC GONADOTROPIN (MANUFACTURER UNKNOWN) (CHORIONIC GONADOTROPIN) (CHORIONIC GONADOTROPIN) [Suspect]
     Indication: INFERTILITY FEMALE
     Dates: start: 2011, end: 2011
  2. PROGESTERONE [Suspect]
     Indication: INFERTILITY FEMALE
     Dates: start: 2011, end: 2011

REACTIONS (1)
  - Meningioma [None]
